FAERS Safety Report 14018661 (Version 1)
Quarter: 2017Q3

REPORT INFORMATION
  Report Type: Spontaneous
  Country: US (occurrence: US)
  Receive Date: 20170927
  Receipt Date: 20170927
  Transmission Date: 20171128
  Serious: Yes (Other)
  Sender: FDA-Public Use
  Company Number: None

PATIENT
  Sex: Female

DRUGS (1)
  1. COLIC CALM [Suspect]
     Active Substance: HOMEOPATHICS

REACTIONS (1)
  - Vomiting [None]

NARRATIVE: CASE EVENT DATE: 20170911
